FAERS Safety Report 10403899 (Version 2)
Quarter: 2014Q4

REPORT INFORMATION
  Report Type: Spontaneous
  Country: US (occurrence: US)
  Receive Date: 20140822
  Receipt Date: 20141111
  Transmission Date: 20150528
  Serious: Yes (Life-Threatening, Hospitalization)
  Sender: FDA-Public Use
  Company Number: US-ASTRAZENECA-2014SE62834

PATIENT
  Age: 54 Year
  Sex: Male

DRUGS (4)
  1. VALSARTAN. [Suspect]
     Active Substance: VALSARTAN
  2. ATENOLOL. [Suspect]
     Active Substance: ATENOLOL
  3. CARBON MONOXIDE [Suspect]
     Active Substance: CARBON MONOXIDE
  4. AMLODIPINE [Suspect]
     Active Substance: AMLODIPINE BESYLATE

REACTIONS (5)
  - Overdose [Recovering/Resolving]
  - Lactic acidosis [Recovering/Resolving]
  - Pulmonary oedema [Recovering/Resolving]
  - Shock [Recovering/Resolving]
  - Renal failure [Recovering/Resolving]
